FAERS Safety Report 5779311-3 (Version None)
Quarter: 2008Q2

REPORT INFORMATION
  Report Type: 
  Country: None (occurrence: None)
  Receive Date: 20080619
  Receipt Date: 20080212
  Transmission Date: 20081010
  Serious: No
  Sender: FDA-Public Use
  Company Number: US-ASTRAZENECA-2007UW27458

PATIENT
  Age: 77 Year
  Sex: Female

DRUGS (2)
  1. ATACAND [Suspect]
     Route: 048
  2. LISINOPRIL [Suspect]

REACTIONS (4)
  - AMNESIA [None]
  - ANOREXIA [None]
  - DRUG HYPERSENSITIVITY [None]
  - PRURITUS [None]
